FAERS Safety Report 23386603 (Version 1)
Quarter: 2024Q1

REPORT INFORMATION
  Report Type: Spontaneous
  Country: CN (occurrence: None)
  Receive Date: 20240110
  Receipt Date: 20240110
  Transmission Date: 20240410
  Serious: Yes (Other)
  Sender: FDA-Public Use
  Company Number: CN-ROCHE-3486665

PATIENT

DRUGS (3)
  1. PERJETA [Suspect]
     Active Substance: PERTUZUMAB
     Indication: Breast cancer
     Route: 042
  2. HERCEPTIN [Suspect]
     Active Substance: TRASTUZUMAB
     Indication: Breast cancer
     Route: 041
  3. PHESGO [Suspect]
     Active Substance: HYALURONIDASE-ZZXF\PERTUZUMAB\TRASTUZUMAB
     Indication: Breast cancer
     Route: 058

REACTIONS (8)
  - Hypersensitivity [Unknown]
  - Infusion related reaction [Unknown]
  - Diarrhoea [Unknown]
  - Interstitial lung disease [Unknown]
  - Neutrophil count decreased [Unknown]
  - Mucosal inflammation [Unknown]
  - Cardiac dysfunction [Unknown]
  - Skin reaction [Unknown]
